FAERS Safety Report 5035433-6 (Version None)
Quarter: 2006Q2

REPORT INFORMATION
  Report Type: 
  Country: None (occurrence: None)
  Receive Date: 20060622
  Receipt Date: 20060607
  Transmission Date: 20061013
  Serious: Yes (Hospitalization, Other)
  Sender: FDA-Public Use
  Company Number: 2006RR-02583

PATIENT
  Age: 65 Year
  Sex: Female

DRUGS (11)
  1. FLUOXETINE [Suspect]
     Indication: DEPRESSION
     Dosage: SEE IMAGE
     Dates: start: 20050725, end: 20050817
  2. FLUOXETINE [Suspect]
     Indication: DEPRESSION
     Dosage: SEE IMAGE
     Dates: start: 20050821, end: 20050826
  3. FLUOXETINE [Suspect]
     Indication: DEPRESSION
     Dosage: SEE IMAGE
     Dates: start: 20050826, end: 20050915
  4. AUGMENTIN '125' [Concomitant]
  5. AUGMENTIN '125' [Concomitant]
  6. CLARITHROMYCIN TABLET 500MG (CLARITHROMYCIN) [Concomitant]
  7. MONTELUKAST [Concomitant]
  8. PREDNISOLONE [Concomitant]
  9. QUETIAPINE FUMARATE [Concomitant]
  10. TAZOCIN [Concomitant]
  11. TAZOCIN [Concomitant]

REACTIONS (3)
  - BRONCHIOLITIS [None]
  - INTERSTITIAL LUNG DISEASE [None]
  - PULMONARY EOSINOPHILIA [None]
